FAERS Safety Report 5808975-0 (Version None)
Quarter: 2008Q3

REPORT INFORMATION
  Report Type: 
  Country: None (occurrence: None)
  Receive Date: 20080710
  Receipt Date: 20080710
  Transmission Date: 20090109
  Serious: Yes (Disabling)
  Sender: FDA-Public Use
  Company Number: None

PATIENT
  Age: 70 Year
  Sex: Female
  Weight: 58.9676 kg

DRUGS (4)
  1. CIPRO [Suspect]
     Indication: URINARY TRACT INFECTION
     Dosage: 1TABLET 2X DAY PO
     Route: 048
     Dates: start: 20071205, end: 20071210
  2. CIPRO [Suspect]
     Indication: VAGINAL INFECTION
     Dosage: 1TABLET 2X DAY PO
     Route: 048
     Dates: start: 20071205, end: 20071210
  3. CIPRO [Suspect]
     Indication: URINARY TRACT INFECTION
     Dosage: 1TABLET 2X DAY PO
     Route: 048
     Dates: start: 20080525, end: 20080605
  4. CIPRO [Suspect]
     Indication: VAGINAL INFECTION
     Dosage: 1TABLET 2X DAY PO
     Route: 048
     Dates: start: 20080525, end: 20080605

REACTIONS (2)
  - GAIT DISTURBANCE [None]
  - TENOSYNOVITIS [None]
